FAERS Safety Report 17722911 (Version 1)
Quarter: 2020Q2

REPORT INFORMATION
  Report Type: Spontaneous
  Country: US (occurrence: US)
  Receive Date: 20200428
  Receipt Date: 20200428
  Transmission Date: 20200714
  Serious: Yes (Hospitalization)
  Sender: FDA-Public Use
  Company Number: None

PATIENT
  Sex: Female

DRUGS (1)
  1. XELJANZ [Suspect]
     Active Substance: TOFACITINIB CITRATE
     Indication: PSORIASIS
     Route: 048

REACTIONS (8)
  - Pyrexia [None]
  - Vomiting [None]
  - Erythema [None]
  - Unevaluable event [None]
  - Peripheral swelling [None]
  - Condition aggravated [None]
  - Rash [None]
  - Clostridium difficile infection [None]
